FAERS Safety Report 5817732-0 (Version None)
Quarter: 2008Q3

REPORT INFORMATION
  Report Type: 
  Country: None (occurrence: None)
  Receive Date: 20080722
  Receipt Date: 20080715
  Transmission Date: 20090109
  Serious: Yes (Other)
  Sender: FDA-Public Use
  Company Number: PHHY2008AU13966

PATIENT
  Sex: Female

DRUGS (4)
  1. EXJADE [Suspect]
     Dosage: 500 MG/DAILY
  2. OMEPRAZOLE [Concomitant]
  3. PENICILLIN [Concomitant]
  4. LOMOTIL [Concomitant]

REACTIONS (1)
  - BLOOD POTASSIUM INCREASED [None]
